FAERS Safety Report 10530746 (Version 3)
Quarter: 2014Q4

REPORT INFORMATION
  Report Type: Report from Study
  Country: JP (occurrence: JP)
  Receive Date: 20141021
  Receipt Date: 20141112
  Transmission Date: 20150528
  Serious: Yes (Death, Hospitalization)
  Sender: FDA-Public Use
  Company Number: JP-SA-2014SA142803

PATIENT
  Age: 80 Year
  Sex: Male

DRUGS (7)
  1. ESTRAMUSTINE [Suspect]
     Active Substance: ESTRAMUSTINE
     Indication: HORMONE-REFRACTORY PROSTATE CANCER
     Dosage: DOSE 560/DAY IN TWO DIVIDED DOSES CYCLE DAY 1 TO 5.
     Route: 065
  2. TAXOTERE [Suspect]
     Active Substance: DOCETAXEL
     Indication: HORMONE-REFRACTORY PROSTATE CANCER
     Dosage: DAY 2.
     Route: 042
  3. DEXAMETHASONE. [Suspect]
     Active Substance: DEXAMETHASONE
     Indication: HORMONE-REFRACTORY PROSTATE CANCER
     Route: 065
  4. DEXAMETHASONE. [Suspect]
     Active Substance: DEXAMETHASONE
     Indication: HORMONE-REFRACTORY PROSTATE CANCER
     Route: 065
  5. HYDROCORTISONE SALT NOT SPECIFIED [Suspect]
     Active Substance: HYDROCORTISONE
     Indication: HORMONE-REFRACTORY PROSTATE CANCER
     Dosage: DOSE 40/DAY IN TWO DIVIDED DOSES CYCLE DAY 1 TO 21.
     Route: 065
  6. HYDROCORTISONE SALT NOT SPECIFIED [Suspect]
     Active Substance: HYDROCORTISONE
     Indication: HORMONE-REFRACTORY PROSTATE CANCER
     Dosage: DOSE 40/DAY IN TWO DIVIDED DOSES CYCLE DAY 1 TO 21.
     Route: 065
  7. ESTRAMUSTINE [Suspect]
     Active Substance: ESTRAMUSTINE
     Indication: HORMONE-REFRACTORY PROSTATE CANCER
     Dosage: DOSE 560/DAY IN TWO DIVIDED DOSES CYCLE DAY 1 TO 5.
     Route: 065

REACTIONS (5)
  - Dyspnoea [Fatal]
  - Pyrexia [Fatal]
  - Pleural effusion [Fatal]
  - Interstitial lung disease [Fatal]
  - Respiratory disorder [Fatal]

NARRATIVE: CASE EVENT DATE: 200702
